FAERS Safety Report 8776370 (Version 4)
Quarter: 2012Q4

REPORT INFORMATION
  Report Type: 
  Country: US (occurrence: US)
  Receive Date: 20120910
  Receipt Date: 20121217
  Transmission Date: 20130627
  Serious: Yes (Other)
  Sender: FDA-Public Use
  Company Number: US-PFIZER INC-2012220709

PATIENT
  Age: 56 Year
  Sex: Female
  Weight: 99.77 kg

DRUGS (6)
  1. NEURONTIN [Suspect]
     Indication: NEUROPATHY
     Dosage: 600 mg (two 300mg), 3x/day
     Dates: start: 2007
  2. GABAPENTIN [Suspect]
     Dosage: 600 mg, 3x/day (300 mg, 2 PO TID)
     Route: 048
  3. CARVEDILOL [Concomitant]
     Indication: BLOOD PRESSURE HIGH
     Dosage: UNK
     Dates: start: 1979
  4. LISINOPRIL [Concomitant]
     Indication: BLOOD PRESSURE HIGH
     Dosage: UNK
     Dates: start: 1979
  5. NOVOLOG [Concomitant]
     Indication: DIABETES
     Dosage: UNK
     Dates: start: 200002
  6. LANTUS [Concomitant]
     Indication: DIABETES
     Dosage: UNK
     Dates: start: 200002

REACTIONS (1)
  - Renal disorder [Unknown]
